FAERS Safety Report 10427948 (Version 3)
Quarter: 2014Q4

REPORT INFORMATION
  Report Type: Spontaneous
  Country: US (occurrence: US)
  Receive Date: 20140903
  Receipt Date: 20141021
  Transmission Date: 20150528
  Serious: Yes (Other)
  Sender: FDA-Public Use
  Company Number: US-AMGEN-USASP2014066116

PATIENT
  Age: 69 Year
  Sex: Female
  Weight: 78.91 kg

DRUGS (2)
  1. ENBREL [Suspect]
     Active Substance: ETANERCEPT
     Indication: PRODUCT USED FOR UNKNOWN INDICATION
     Dosage: 50 MG, QWK
     Route: 030
     Dates: start: 20130818
  2. XELJANZ [Suspect]
     Active Substance: TOFACITINIB CITRATE
     Indication: RHEUMATOID ARTHRITIS
     Dosage: UNK
     Route: 065
     Dates: start: 201403, end: 20140614

REACTIONS (11)
  - Pyrexia [Recovered/Resolved]
  - Tooth infection [Recovered/Resolved]
  - Inflammation [Recovered/Resolved]
  - Malaise [Recovered/Resolved]
  - Eye pain [Recovered/Resolved]
  - Hypersensitivity [Unknown]
  - Incorrect route of drug administration [Unknown]
  - Toothache [Unknown]
  - Influenza like illness [Recovered/Resolved]
  - Facial pain [Recovered/Resolved]
  - Herpes zoster [Recovered/Resolved]
